FAERS Safety Report 5658498-7 (Version None)
Quarter: 2008Q1

REPORT INFORMATION
  Report Type: 
  Country: None (occurrence: None)
  Receive Date: 20080310
  Receipt Date: 20070802
  Transmission Date: 20080703
  Serious: Yes (Other)
  Sender: FDA-Public Use
  Company Number: US-BAYER-200710576BCC

PATIENT
  Age: 83 Year
  Sex: Female
  Weight: 84 kg

DRUGS (10)
  1. ALEVE [Suspect]
     Indication: ARTHRALGIA
     Dosage: TOTAL DAILY DOSE: 220 MG  UNIT DOSE: 220 MG
     Route: 048
     Dates: start: 20070201
  2. ALEVE [Suspect]
     Dosage: TOTAL DAILY DOSE: 440 MG  UNIT DOSE: 220 MG
     Route: 048
     Dates: start: 20070201
  3. NIRAVAM [Concomitant]
     Dosage: TOTAL DAILY DOSE: 1.0 MG  UNIT DOSE: 0.5 MG
  4. SYNTHROID [Concomitant]
  5. HYDROCHLOROTHIAZIDE [Concomitant]
  6. TRICOR [Concomitant]
  7. CELEBREX [Concomitant]
  8. ST. JOSEPH ASPIRIN [Concomitant]
  9. NITROGLYCERIN [Concomitant]
  10. DIGITALIS TAB [Concomitant]

REACTIONS (3)
  - AGGRESSION [None]
  - DISSOCIATIVE AMNESIA [None]
  - MEMORY IMPAIRMENT [None]
